FAERS Safety Report 19642838 (Version 3)
Quarter: 2022Q1

REPORT INFORMATION
  Report Type: Spontaneous
  Country: US (occurrence: US)
  Receive Date: 20210730
  Receipt Date: 20220228
  Transmission Date: 20220423
  Serious: Yes (Other)
  Sender: FDA-Public Use
  Company Number: US-PFIZER INC-202100935753

PATIENT
  Age: 64 Year
  Sex: Female

DRUGS (140)
  1. PROTONIX [Suspect]
     Active Substance: PANTOPRAZOLE SODIUM
     Indication: Gastrooesophageal reflux disease
     Dosage: UNK
     Dates: start: 2008, end: 2018
  2. PROTONIX [Suspect]
     Active Substance: PANTOPRAZOLE SODIUM
     Dosage: 40 MG, 1X/DAY
     Dates: end: 2018
  3. NEXIUM [Suspect]
     Active Substance: ESOMEPRAZOLE MAGNESIUM
     Indication: Gastrooesophageal reflux disease
     Dosage: 40 MG, 1X/DAY
     Dates: start: 2007, end: 2018
  4. NEXIUM [Suspect]
     Active Substance: ESOMEPRAZOLE MAGNESIUM
     Dosage: UNK
     Dates: start: 2008, end: 2018
  5. PRILOSEC [Suspect]
     Active Substance: OMEPRAZOLE MAGNESIUM
     Indication: Gastrooesophageal reflux disease
     Dosage: 20 MG, 1X/DAY
     Dates: start: 2008, end: 2018
  6. DEXILANT [Suspect]
     Active Substance: DEXLANSOPRAZOLE
     Indication: Gastrooesophageal reflux disease
     Dosage: 60 MG, 1X/DAY
  7. OMEPRAZOLE [Suspect]
     Active Substance: OMEPRAZOLE
     Indication: Gastrooesophageal reflux disease
     Dosage: 20 MG, 1X/DAY
     Dates: start: 2010, end: 2019
  8. PANTOPRAZOLE [Suspect]
     Active Substance: PANTOPRAZOLE
     Indication: Gastrooesophageal reflux disease
     Dosage: 40 MG, 1X/DAY
     Dates: start: 2018
  9. MELOXICAM [Concomitant]
     Active Substance: MELOXICAM
     Indication: Pain
     Dosage: UNK
     Dates: start: 201601
  10. MELOXICAM [Concomitant]
     Active Substance: MELOXICAM
     Dosage: UNK
     Dates: start: 201602
  11. NAPROXEN [Concomitant]
     Active Substance: NAPROXEN
     Indication: Pain
     Dosage: UNK
     Dates: start: 201307
  12. TRAMADOL [Concomitant]
     Active Substance: TRAMADOL
     Indication: Pain
     Dosage: UNK
     Dates: start: 201601
  13. TRAMADOL [Concomitant]
     Active Substance: TRAMADOL
     Dosage: UNK
     Dates: start: 201604
  14. TRAMADOL [Concomitant]
     Active Substance: TRAMADOL
     Dosage: UNK
     Dates: start: 2019
  15. TRAMADOL [Concomitant]
     Active Substance: TRAMADOL
     Dosage: UNK
     Dates: start: 202009
  16. TRAMADOL [Concomitant]
     Active Substance: TRAMADOL
     Dosage: UNK
     Dates: start: 202106
  17. ULTRAM [Concomitant]
     Active Substance: TRAMADOL HYDROCHLORIDE
     Indication: Pain
     Dosage: UNK
     Dates: start: 201503
  18. ULTRAM [Concomitant]
     Active Substance: TRAMADOL HYDROCHLORIDE
     Dosage: UNK
     Dates: start: 201909
  19. ULTRAM [Concomitant]
     Active Substance: TRAMADOL HYDROCHLORIDE
     Dosage: UNK
     Dates: start: 202001
  20. AMOXICILLIN [Concomitant]
     Active Substance: AMOXICILLIN
     Indication: Infection
     Dosage: UNK
     Dates: start: 201503
  21. AMOXICILLIN [Concomitant]
     Active Substance: AMOXICILLIN
     Dosage: UNK
     Dates: start: 201601
  22. AMOXICILLIN [Concomitant]
     Active Substance: AMOXICILLIN
     Dosage: UNK
     Dates: start: 201602
  23. AMOXICILLIN [Concomitant]
     Active Substance: AMOXICILLIN
     Dosage: UNK
     Dates: start: 201604
  24. AMOXICILLIN [Concomitant]
     Active Substance: AMOXICILLIN
     Dosage: UNK
     Dates: start: 201612
  25. AMOXICILLIN [Concomitant]
     Active Substance: AMOXICILLIN
     Dosage: UNK
     Dates: start: 201701
  26. AMOXICILLIN [Concomitant]
     Active Substance: AMOXICILLIN
     Dosage: UNK
     Dates: start: 201702
  27. AMOXICILLIN [Concomitant]
     Active Substance: AMOXICILLIN
     Dosage: UNK
     Dates: start: 201709
  28. AMOXICILLIN [Concomitant]
     Active Substance: AMOXICILLIN
     Dosage: UNK
     Dates: start: 201802
  29. AMOXICILLIN [Concomitant]
     Active Substance: AMOXICILLIN
     Dosage: UNK
     Dates: start: 201902
  30. AMOXICILLIN [Concomitant]
     Active Substance: AMOXICILLIN
     Dosage: UNK
     Dates: start: 201909
  31. AMOXICILLIN [Concomitant]
     Active Substance: AMOXICILLIN
     Dosage: UNK
     Dates: start: 201911
  32. AZITHROMYCIN [Concomitant]
     Active Substance: AZITHROMYCIN
     Indication: Infection
     Dosage: UNK
     Dates: start: 200903
  33. AZITHROMYCIN [Concomitant]
     Active Substance: AZITHROMYCIN
     Dosage: UNK
     Dates: start: 201206
  34. AZITHROMYCIN [Concomitant]
     Active Substance: AZITHROMYCIN
     Dosage: UNK
     Dates: start: 201303
  35. AZITHROMYCIN [Concomitant]
     Active Substance: AZITHROMYCIN
     Dosage: UNK
     Dates: start: 201304
  36. AZITHROMYCIN [Concomitant]
     Active Substance: AZITHROMYCIN
     Dosage: UNK
     Dates: start: 201508
  37. AZITHROMYCIN [Concomitant]
     Active Substance: AZITHROMYCIN
     Dosage: UNK
     Dates: start: 201511
  38. AZITHROMYCIN [Concomitant]
     Active Substance: AZITHROMYCIN
     Dosage: UNK
     Dates: start: 201602
  39. AZITHROMYCIN [Concomitant]
     Active Substance: AZITHROMYCIN
     Dosage: UNK
     Dates: start: 201603
  40. AZITHROMYCIN [Concomitant]
     Active Substance: AZITHROMYCIN
     Dosage: UNK
     Dates: start: 201701
  41. AZITHROMYCIN [Concomitant]
     Active Substance: AZITHROMYCIN
     Dosage: UNK
     Dates: start: 201703
  42. AZITHROMYCIN [Concomitant]
     Active Substance: AZITHROMYCIN
     Dosage: UNK
     Dates: start: 201704
  43. AZITHROMYCIN [Concomitant]
     Active Substance: AZITHROMYCIN
     Dosage: UNK
     Dates: start: 201802
  44. AZITHROMYCIN [Concomitant]
     Active Substance: AZITHROMYCIN
     Dosage: UNK
     Dates: start: 201811
  45. AZITHROMYCIN [Concomitant]
     Active Substance: AZITHROMYCIN
     Dosage: UNK
     Dates: start: 201903
  46. ZITHROMAX [Concomitant]
     Active Substance: AZITHROMYCIN DIHYDRATE
     Indication: Infection
     Dosage: UNK
     Dates: start: 200807
  47. ZITHROMAX [Concomitant]
     Active Substance: AZITHROMYCIN DIHYDRATE
     Dosage: UNK
     Dates: start: 200812
  48. ZITHROMAX [Concomitant]
     Active Substance: AZITHROMYCIN DIHYDRATE
     Dosage: UNK
     Dates: start: 201204
  49. ZITHROMAX [Concomitant]
     Active Substance: AZITHROMYCIN DIHYDRATE
     Dosage: UNK
     Dates: start: 201811
  50. ZITHROMAX [Concomitant]
     Active Substance: AZITHROMYCIN DIHYDRATE
     Dosage: UNK
     Dates: start: 201903
  51. CEFAZOLIN [Concomitant]
     Active Substance: CEFAZOLIN
     Indication: Infection
     Dosage: UNK
     Dates: start: 201709
  52. CEFAZOLIN [Concomitant]
     Active Substance: CEFAZOLIN
     Dosage: UNK
     Dates: start: 201803
  53. CEFAZOLIN [Concomitant]
     Active Substance: CEFAZOLIN
     Dosage: UNK
     Dates: start: 201807
  54. CEFAZOLIN [Concomitant]
     Active Substance: CEFAZOLIN
     Dosage: UNK
     Dates: start: 201903
  55. CEFAZOLIN [Concomitant]
     Active Substance: CEFAZOLIN
     Dosage: UNK
     Dates: start: 201909
  56. CEFAZOLIN [Concomitant]
     Active Substance: CEFAZOLIN
     Dosage: UNK
     Dates: start: 201910
  57. CIPROFLOXACIN [Concomitant]
     Active Substance: CIPROFLOXACIN
     Indication: Infection
     Dosage: UNK
     Dates: start: 201211
  58. CIPROFLOXACIN [Concomitant]
     Active Substance: CIPROFLOXACIN
     Dosage: UNK
     Dates: start: 201709
  59. CIPROFLOXACIN [Concomitant]
     Active Substance: CIPROFLOXACIN
     Dosage: UNK
     Dates: start: 201802
  60. CIPROFLOXACIN [Concomitant]
     Active Substance: CIPROFLOXACIN
     Dosage: UNK
     Dates: start: 201803
  61. CIPROFLOXACIN [Concomitant]
     Active Substance: CIPROFLOXACIN
     Dosage: UNK
     Dates: start: 201807
  62. CIPROFLOXACIN [Concomitant]
     Active Substance: CIPROFLOXACIN
     Dosage: UNK
     Dates: start: 201903
  63. CIPROFLOXACIN [Concomitant]
     Active Substance: CIPROFLOXACIN
     Dosage: UNK
     Dates: start: 201909
  64. CIPROFLOXACIN [Concomitant]
     Active Substance: CIPROFLOXACIN
     Dosage: UNK
     Dates: start: 201910
  65. DOXYCYCLINE [Concomitant]
     Active Substance: DOXYCYCLINE
     Indication: Infection
     Dosage: UNK
     Dates: start: 201503
  66. DOXYCYCLINE [Concomitant]
     Active Substance: DOXYCYCLINE
     Dosage: UNK
     Dates: start: 201602
  67. DOXYCYCLINE [Concomitant]
     Active Substance: DOXYCYCLINE
     Dosage: UNK
     Dates: start: 201604
  68. DOXYCYCLINE [Concomitant]
     Active Substance: DOXYCYCLINE
     Dosage: UNK
     Dates: start: 201606
  69. DOXYCYCLINE [Concomitant]
     Active Substance: DOXYCYCLINE
     Dosage: UNK
     Dates: start: 201810
  70. LEVOFLOXACIN [Concomitant]
     Active Substance: LEVOFLOXACIN
     Indication: Infection
     Dosage: UNK
     Dates: start: 201307
  71. LEVOFLOXACIN [Concomitant]
     Active Substance: LEVOFLOXACIN
     Dosage: UNK
     Dates: start: 201402
  72. LEVOFLOXACIN [Concomitant]
     Active Substance: LEVOFLOXACIN
     Dosage: UNK
     Dates: start: 201502
  73. LEVOFLOXACIN [Concomitant]
     Active Substance: LEVOFLOXACIN
     Dosage: UNK
     Dates: start: 201505
  74. LEVOFLOXACIN [Concomitant]
     Active Substance: LEVOFLOXACIN
     Dosage: UNK
     Dates: start: 201507
  75. LEVOFLOXACIN [Concomitant]
     Active Substance: LEVOFLOXACIN
     Dosage: UNK
     Dates: start: 201601
  76. LEVOFLOXACIN [Concomitant]
     Active Substance: LEVOFLOXACIN
     Dosage: UNK
     Dates: start: 201602
  77. LEVOFLOXACIN [Concomitant]
     Active Substance: LEVOFLOXACIN
     Dosage: UNK
     Dates: start: 201603
  78. LEVOFLOXACIN [Concomitant]
     Active Substance: LEVOFLOXACIN
     Dosage: UNK
     Dates: start: 201604
  79. LEVOFLOXACIN [Concomitant]
     Active Substance: LEVOFLOXACIN
     Dosage: UNK
     Dates: start: 201802
  80. LEVOFLOXACIN [Concomitant]
     Active Substance: LEVOFLOXACIN
     Dosage: UNK
     Dates: start: 201803
  81. LEVAQUIN [Concomitant]
     Active Substance: LEVOFLOXACIN
     Indication: Infection
     Dosage: UNK
     Dates: start: 201303
  82. LEVAQUIN [Concomitant]
     Active Substance: LEVOFLOXACIN
     Dosage: UNK
     Dates: start: 201307
  83. LEVAQUIN [Concomitant]
     Active Substance: LEVOFLOXACIN
     Dosage: UNK
     Dates: start: 201505
  84. LEVAQUIN [Concomitant]
     Active Substance: LEVOFLOXACIN
     Dosage: UNK
     Dates: start: 201802
  85. LEVAQUIN [Concomitant]
     Active Substance: LEVOFLOXACIN
     Dosage: UNK
     Dates: start: 201803
  86. PENICILLIN [Concomitant]
     Active Substance: PENICILLIN
     Indication: Infection
     Dosage: UNK
     Dates: start: 201305
  87. PENICILLIN [Concomitant]
     Active Substance: PENICILLIN
     Dosage: UNK
     Dates: start: 201801
  88. SULFAMETHOXAZOLE\TRIMETHOPRIM [Concomitant]
     Active Substance: SULFAMETHOXAZOLE\TRIMETHOPRIM
     Indication: Infection
     Dosage: UNK
     Dates: start: 201007
  89. SULFAMETHOXAZOLE\TRIMETHOPRIM [Concomitant]
     Active Substance: SULFAMETHOXAZOLE\TRIMETHOPRIM
     Dosage: UNK
     Dates: start: 201908
  90. SULFAMETHOXAZOLE\TRIMETHOPRIM [Concomitant]
     Active Substance: SULFAMETHOXAZOLE\TRIMETHOPRIM
     Dosage: UNK
     Dates: start: 202009
  91. BACTRIM [Concomitant]
     Active Substance: SULFAMETHOXAZOLE\TRIMETHOPRIM
     Indication: Infection
     Dosage: UNK
     Dates: start: 200806
  92. BACTRIM [Concomitant]
     Active Substance: SULFAMETHOXAZOLE\TRIMETHOPRIM
     Dosage: UNK
     Dates: start: 200807
  93. BACTRIM [Concomitant]
     Active Substance: SULFAMETHOXAZOLE\TRIMETHOPRIM
     Dosage: UNK
     Dates: start: 201402
  94. BACTRIM [Concomitant]
     Active Substance: SULFAMETHOXAZOLE\TRIMETHOPRIM
     Dosage: UNK
     Dates: start: 201504
  95. BACTRIM [Concomitant]
     Active Substance: SULFAMETHOXAZOLE\TRIMETHOPRIM
     Dosage: UNK
     Dates: start: 201908
  96. LISINOPRIL [Concomitant]
     Active Substance: LISINOPRIL
     Indication: Blood pressure abnormal
     Dosage: UNK
     Dates: start: 2013, end: 2019
  97. LOVASTATIN [Concomitant]
     Active Substance: LOVASTATIN
     Indication: Blood pressure abnormal
     Dosage: UNK
     Dates: start: 202007
  98. LOVASTATIN [Concomitant]
     Active Substance: LOVASTATIN
     Dosage: UNK
     Dates: start: 202009
  99. LOVASTATIN [Concomitant]
     Active Substance: LOVASTATIN
     Dosage: UNK
     Dates: start: 202011
  100. LOVASTATIN [Concomitant]
     Active Substance: LOVASTATIN
     Dosage: UNK
     Dates: start: 202012
  101. LOVASTATIN [Concomitant]
     Active Substance: LOVASTATIN
     Dosage: UNK
     Dates: start: 202101
  102. LOVASTATIN [Concomitant]
     Active Substance: LOVASTATIN
     Dosage: UNK
     Dates: start: 202103
  103. LOVASTATIN [Concomitant]
     Active Substance: LOVASTATIN
     Dosage: UNK
     Dates: start: 202106
  104. LOVASTATIN [Concomitant]
     Active Substance: LOVASTATIN
     Dosage: UNK
     Dates: start: 202107
  105. FUROSEMIDE [Concomitant]
     Active Substance: FUROSEMIDE
     Dosage: UNK
     Dates: start: 2009, end: 2018
  106. LASIX [Concomitant]
     Active Substance: FUROSEMIDE
     Dosage: UNK
     Dates: start: 2009, end: 2018
  107. ATORVASTATIN [Concomitant]
     Active Substance: ATORVASTATIN
     Indication: Cardiac disorder
     Dosage: UNK
     Dates: start: 201905
  108. ATORVASTATIN [Concomitant]
     Active Substance: ATORVASTATIN
     Dosage: UNK
     Dates: start: 201909
  109. LIPITOR [Concomitant]
     Active Substance: ATORVASTATIN CALCIUM
     Indication: Cardiac disorder
     Dosage: UNK
     Dates: start: 201909
  110. LIPITOR [Concomitant]
     Active Substance: ATORVASTATIN CALCIUM
     Dosage: UNK
     Dates: start: 201910
  111. SIMVASTATIN [Concomitant]
     Active Substance: SIMVASTATIN
     Indication: Cardiac disorder
     Dosage: UNK
     Dates: start: 2009, end: 2015
  112. ZOCOR [Concomitant]
     Active Substance: SIMVASTATIN
     Indication: Cardiac disorder
     Dosage: UNK
     Dates: start: 200809
  113. ZOCOR [Concomitant]
     Active Substance: SIMVASTATIN
     Dosage: UNK
     Dates: start: 200901
  114. ZOCOR [Concomitant]
     Active Substance: SIMVASTATIN
     Dosage: UNK
     Dates: start: 201002
  115. ZOCOR [Concomitant]
     Active Substance: SIMVASTATIN
     Dosage: UNK
     Dates: start: 201007
  116. ZOCOR [Concomitant]
     Active Substance: SIMVASTATIN
     Dosage: UNK
     Dates: start: 201101
  117. ZOCOR [Concomitant]
     Active Substance: SIMVASTATIN
     Dosage: UNK
     Dates: start: 201203
  118. ZOCOR [Concomitant]
     Active Substance: SIMVASTATIN
     Dosage: UNK
     Dates: start: 201207
  119. ZOCOR [Concomitant]
     Active Substance: SIMVASTATIN
     Dosage: UNK
     Dates: start: 201303
  120. ZOCOR [Concomitant]
     Active Substance: SIMVASTATIN
     Dosage: UNK
     Dates: start: 201305
  121. FLUOXETINE [Concomitant]
     Active Substance: FLUOXETINE HYDROCHLORIDE
     Indication: Depression
     Dosage: UNK
     Dates: start: 200702
  122. FLUOXETINE [Concomitant]
     Active Substance: FLUOXETINE HYDROCHLORIDE
     Dosage: UNK
     Dates: start: 200712
  123. FLUOXETINE [Concomitant]
     Active Substance: FLUOXETINE HYDROCHLORIDE
     Dosage: UNK
     Dates: start: 200802
  124. FLUOXETINE [Concomitant]
     Active Substance: FLUOXETINE HYDROCHLORIDE
     Dosage: UNK
     Dates: start: 200807
  125. FLUOXETINE [Concomitant]
     Active Substance: FLUOXETINE HYDROCHLORIDE
     Dosage: UNK
     Dates: start: 200809
  126. FLUOXETINE [Concomitant]
     Active Substance: FLUOXETINE HYDROCHLORIDE
     Dosage: UNK
     Dates: start: 200901
  127. FLUOXETINE [Concomitant]
     Active Substance: FLUOXETINE HYDROCHLORIDE
     Dosage: UNK
     Dates: start: 200911
  128. FLUOXETINE [Concomitant]
     Active Substance: FLUOXETINE HYDROCHLORIDE
     Dosage: UNK
     Dates: start: 201104
  129. FLUOXETINE [Concomitant]
     Active Substance: FLUOXETINE HYDROCHLORIDE
     Dosage: UNK
     Dates: start: 201110
  130. FLUOXETINE [Concomitant]
     Active Substance: FLUOXETINE HYDROCHLORIDE
     Dosage: UNK
     Dates: start: 201203
  131. FLUOXETINE [Concomitant]
     Active Substance: FLUOXETINE HYDROCHLORIDE
     Dosage: UNK
     Dates: start: 201209
  132. FLUOXETINE [Concomitant]
     Active Substance: FLUOXETINE HYDROCHLORIDE
     Dosage: UNK
     Dates: start: 201702
  133. PROZAC [Concomitant]
     Active Substance: FLUOXETINE HYDROCHLORIDE
     Indication: Depression
     Dosage: UNK
     Dates: start: 200806
  134. PROZAC [Concomitant]
     Active Substance: FLUOXETINE HYDROCHLORIDE
     Dosage: UNK
     Dates: start: 200901
  135. PROZAC [Concomitant]
     Active Substance: FLUOXETINE HYDROCHLORIDE
     Dosage: UNK
     Dates: start: 200911
  136. PROZAC [Concomitant]
     Active Substance: FLUOXETINE HYDROCHLORIDE
     Dosage: UNK
     Dates: start: 201006
  137. PROZAC [Concomitant]
     Active Substance: FLUOXETINE HYDROCHLORIDE
     Dosage: UNK
     Dates: start: 201009
  138. PROZAC [Concomitant]
     Active Substance: FLUOXETINE HYDROCHLORIDE
     Dosage: UNK
     Dates: start: 201104
  139. ACETAMINOPHEN [Concomitant]
     Active Substance: ACETAMINOPHEN
     Indication: Pain
     Dosage: UNK, AS NEEDED
  140. IBUPROFEN [Concomitant]
     Active Substance: IBUPROFEN
     Indication: Pain
     Dosage: UNK, AS NEEDED

REACTIONS (3)
  - Chronic kidney disease [Not Recovered/Not Resolved]
  - Acute kidney injury [Not Recovered/Not Resolved]
  - Gastrooesophageal reflux disease [Not Recovered/Not Resolved]

NARRATIVE: CASE EVENT DATE: 20180101
